FAERS Safety Report 7858095-9 (Version None)
Quarter: 2011Q4

REPORT INFORMATION
  Report Type: 
  Country: None (occurrence: None)
  Receive Date: 20111027
  Receipt Date: 20111017
  Transmission Date: 20120403
  Serious: Yes (Hospitalization)
  Sender: FDA-Public Use
  Company Number: US-BAYER-2011-075432

PATIENT
  Age: 17 Year
  Sex: Female
  Weight: 48.526 kg

DRUGS (47)
  1. AZITHROMYCIN [Concomitant]
     Dosage: UNK
     Dates: start: 20040101
  2. ALEVE [Concomitant]
     Dosage: UNK
     Dates: start: 20040101
  3. NSAID'S [Concomitant]
     Indication: ANALGESIC THERAPY
     Dosage: UNK, PRN
  4. PREVACID [Concomitant]
     Indication: GASTROOESOPHAGEAL REFLUX DISEASE
     Dosage: 30 MG, UNK
     Dates: start: 20081021
  5. FROVATRIPTAN [Concomitant]
     Dosage: UNK
     Dates: start: 20040101
  6. IBUPROFEN (ADVIL) [Concomitant]
     Dosage: UNK
     Dates: start: 20040101
  7. BUSPAR [Concomitant]
     Dosage: UNK
     Dates: start: 20060101, end: 20100101
  8. NEXIUM [Concomitant]
     Dosage: UNK
     Dates: start: 20080507
  9. MORPHINE [Concomitant]
  10. VICODIN [Concomitant]
  11. CEFTIN [Concomitant]
     Dosage: UNK
     Dates: start: 20040101
  12. ZOLOFT [Concomitant]
     Indication: DEPRESSION
  13. FLEXERIL [Concomitant]
     Indication: MUSCLE SPASMS
     Dosage: UNK
     Dates: start: 20060101, end: 20110101
  14. NAPROXEN [Concomitant]
     Dosage: UNK
     Dates: start: 20040101
  15. CYMBALTA [Concomitant]
     Indication: ANXIETY
     Dosage: UNK
     Dates: start: 20060101, end: 20100101
  16. PROZAC [Concomitant]
     Indication: DEPRESSION
  17. SKELAXIN [Concomitant]
     Indication: MUSCLE SPASMS
     Dosage: UNK
     Dates: start: 20060101, end: 20110101
  18. MAXALT [Concomitant]
     Dosage: UNK
     Dates: start: 20040101
  19. XANAX [Concomitant]
     Indication: ANXIETY
     Dosage: UNK
     Dates: start: 20060101, end: 20100101
  20. VIRAL VACCINES [Concomitant]
     Dosage: UNK
     Dates: start: 20080304
  21. PROTONIX [Concomitant]
  22. YAZ [Suspect]
     Indication: ACNE
  23. YAZ [Suspect]
  24. CEPHALEXIN [Concomitant]
     Dosage: UNK
     Dates: start: 20040101
  25. NAPROSYN [Concomitant]
     Dosage: UNK
     Dates: start: 20040101
  26. STRATTERA [Concomitant]
     Indication: ATTENTION DEFICIT/HYPERACTIVITY DISORDER
     Dosage: UNK
     Dates: start: 20080101, end: 20100101
  27. MIDRIN [Concomitant]
     Dosage: UNK
     Dates: start: 20040101
  28. YAZ [Suspect]
     Indication: CONTRACEPTION
     Dosage: UNK UNK, QD
     Route: 048
     Dates: start: 20080101, end: 20100101
  29. ZOLOFT [Concomitant]
     Indication: ANXIETY
     Dosage: UNK
     Dates: start: 20060101, end: 20100101
  30. PROZAC [Concomitant]
     Indication: ANXIETY
     Dosage: 40 UNK, UNK
     Route: 048
     Dates: start: 20060101, end: 20100101
  31. HYDROCODONE BITARTRATE AND ACETAMINOPHEN [Concomitant]
     Indication: ANALGESIC THERAPY
     Dosage: UNK
     Dates: start: 20081102
  32. IBUPROFEN [Concomitant]
     Dosage: UNK
     Dates: start: 20040101
  33. CELEXA [Concomitant]
     Dosage: UNK
     Dates: start: 20060101, end: 20100101
  34. SODIUM CHLORIDE [Concomitant]
  35. PERCOCET [Concomitant]
  36. CYMBALTA [Concomitant]
     Indication: DEPRESSION
  37. TRAMADOL HCL [Concomitant]
     Indication: ANALGESIC THERAPY
     Dosage: UNK
     Dates: start: 20080101
  38. KLONOPIN [Concomitant]
     Dosage: UNK
     Dates: start: 20060101, end: 20100101
  39. ZOFRAN [Concomitant]
  40. MILK OF MAGNESIA TAB [Concomitant]
  41. YAZ [Suspect]
     Indication: PREMENSTRUAL SYNDROME
  42. NEURONTIN [Concomitant]
     Indication: ANALGESIC THERAPY
     Dosage: 600 MG, PRN
     Route: 048
     Dates: start: 20040101
  43. IMITREX [Concomitant]
     Dosage: UNK
     Dates: start: 20040101
  44. ADDERALL 5 [Concomitant]
     Indication: ATTENTION DEFICIT/HYPERACTIVITY DISORDER
     Dosage: UNK
     Dates: start: 20080101, end: 20100101
  45. DURADRIN [Concomitant]
     Dosage: UNK
     Dates: start: 20040101
  46. XANAX [Concomitant]
     Indication: DEPRESSION
  47. TYLENOL-500 [Concomitant]

REACTIONS (5)
  - CHOLECYSTITIS CHRONIC [None]
  - PAIN [None]
  - SPHINCTER OF ODDI DYSFUNCTION [None]
  - GALLBLADDER DISORDER [None]
  - PANCREATITIS [None]
